FAERS Safety Report 20952087 (Version 1)
Quarter: 2022Q2

REPORT INFORMATION
  Report Type: Spontaneous
  Country: None (occurrence: US)
  Receive Date: 20220613
  Receipt Date: 20220613
  Transmission Date: 20220720
  Serious: No
  Sender: FDA-Public Use
  Company Number: US-Ascent Pharmaceuticals, Inc.-2129783

PATIENT
  Age: 81 Year
  Sex: Male
  Weight: 78.636 kg

DRUGS (3)
  1. OXYCODONE AND ACETAMINOPHEN [Suspect]
     Active Substance: ACETAMINOPHEN\OXYCODONE HYDROCHLORIDE
     Indication: Analgesic therapy
     Route: 048
  2. VITAMINS [Concomitant]
     Active Substance: VITAMINS
     Route: 065
  3. Ocuvite for eye [Concomitant]
     Route: 065

REACTIONS (2)
  - Drug ineffective [Unknown]
  - Product packaging issue [Unknown]
